FAERS Safety Report 9383105 (Version 1)
Quarter: 2013Q3

REPORT INFORMATION
  Report Type: Spontaneous
  Country: US (occurrence: US)
  Receive Date: 20130704
  Receipt Date: 20130704
  Transmission Date: 20140515
  Serious: Yes (Other)
  Sender: FDA-Public Use
  Company Number: US-JNJFOC-20130619558

PATIENT
  Age: 73 Year
  Sex: Male

DRUGS (1)
  1. NICOTINE POLACRILEX GUM [Suspect]
     Indication: PRODUCT USED FOR UNKNOWN INDICATION
     Dosage: 15-20 PIECES OF 2 MG GUM
     Route: 048

REACTIONS (3)
  - Nicotine dependence [Unknown]
  - Intentional drug misuse [Unknown]
  - Therapeutic response unexpected [Unknown]
